FAERS Safety Report 13214806 (Version 3)
Quarter: 2018Q1

REPORT INFORMATION
  Report Type: Spontaneous
  Country: IT (occurrence: IT)
  Receive Date: 20170210
  Receipt Date: 20180212
  Transmission Date: 20180508
  Serious: Yes (Other)
  Sender: FDA-Public Use
  Company Number: IT-PFIZER INC-2017060179

PATIENT
  Age: 13 Year
  Sex: Male

DRUGS (2)
  1. ZARONTIN [Suspect]
     Active Substance: ETHOSUXIMIDE
     Indication: ELECTROENCEPHALOGRAM ABNORMAL
     Dosage: 800 MG, DAILY
     Route: 048
     Dates: start: 20160515, end: 20170208
  2. DEPAKIN [Suspect]
     Active Substance: VALPROATE SODIUM
     Indication: ELECTROENCEPHALOGRAM ABNORMAL
     Dosage: 750 MG, DAILY
     Route: 048
     Dates: start: 20160515, end: 20170208

REACTIONS (1)
  - Tremor [Recovering/Resolving]

NARRATIVE: CASE EVENT DATE: 20160715
